FAERS Safety Report 19176557 (Version 1)
Quarter: 2021Q2

REPORT INFORMATION
  Report Type: Spontaneous
  Country: CN (occurrence: CN)
  Receive Date: 20210424
  Receipt Date: 20210424
  Transmission Date: 20210717
  Serious: Yes (Hospitalization)
  Sender: FDA-Public Use
  Company Number: CN-JNJFOC-20210433426

PATIENT

DRUGS (1)
  1. CHILDRENS MOTRIN [Suspect]
     Active Substance: IBUPROFEN
     Indication: PYREXIA
     Dosage: USED AT AN INTERVAL OF 4 TO 6 HOURS EACH TIME ACCORDING TO THE PACKAGE INSERT
     Route: 048

REACTIONS (2)
  - Hepatic failure [Unknown]
  - Drug ineffective [Unknown]
